FAERS Safety Report 12212765 (Version 9)
Quarter: 2016Q4

REPORT INFORMATION
  Report Type: Report from Study
  Country: CA (occurrence: CA)
  Receive Date: 20160328
  Receipt Date: 20161103
  Transmission Date: 20170207
  Serious: Yes (Other)
  Sender: FDA-Public Use
  Company Number: CA-ROCHE-1352032

PATIENT
  Age: 42 Year
  Sex: Female
  Weight: 64.5 kg

DRUGS (14)
  1. RITUXAN [Suspect]
     Active Substance: RITUXIMAB
     Indication: RHEUMATOID ARTHRITIS
     Route: 042
     Dates: start: 20130618
  2. ACTONEL [Concomitant]
     Active Substance: RISEDRONATE SODIUM
     Route: 065
  3. CYCLOBENZAPRINE [Concomitant]
     Active Substance: CYCLOBENZAPRINE
     Route: 065
  4. ZOPICLONE [Concomitant]
     Active Substance: ZOPICLONE
     Dosage: AT BED TIME (HS)
     Route: 065
  5. ACETAMINOPHEN. [Concomitant]
     Active Substance: ACETAMINOPHEN
     Indication: PREMEDICATION
     Route: 048
     Dates: start: 20130618, end: 20160330
  6. PREDNISONE. [Suspect]
     Active Substance: PREDNISONE
     Indication: PRODUCT USED FOR UNKNOWN INDICATION
     Route: 065
     Dates: start: 2015
  7. DIPHENHYDRAMINE HCL [Concomitant]
     Active Substance: DIPHENHYDRAMINE HYDROCHLORIDE
     Indication: PREMEDICATION
     Dosage: RITUXAN PRE-MEDICATION
     Route: 048
     Dates: start: 20130618
  8. METHYLPREDNISOLONE. [Concomitant]
     Active Substance: METHYLPREDNISOLONE
     Indication: PREMEDICATION
     Route: 042
     Dates: start: 20130618
  9. PARIET [Concomitant]
     Active Substance: RABEPRAZOLE SODIUM
     Route: 065
  10. AZATHIOPRINE. [Concomitant]
     Active Substance: AZATHIOPRINE
     Route: 065
  11. MORPHINE [Concomitant]
     Active Substance: MORPHINE
     Route: 065
  12. RITUXAN [Suspect]
     Active Substance: RITUXIMAB
     Dosage: RECEIVED LAST DOSE OF RITUXIMAB ON 31/MAR/2014
     Route: 042
     Dates: start: 20130702
  13. ACETAMINOPHEN. [Concomitant]
     Active Substance: ACETAMINOPHEN
     Route: 048
     Dates: start: 20160927, end: 20160927
  14. MORPHINE SULFATE. [Concomitant]
     Active Substance: MORPHINE SULFATE
     Dosage: AT AM AND HS
     Route: 065

REACTIONS (25)
  - Headache [Unknown]
  - Pyrexia [Unknown]
  - Muscle strain [Unknown]
  - Limb injury [Unknown]
  - Back injury [Recovering/Resolving]
  - Throat irritation [Recovered/Resolved]
  - Lung disorder [Unknown]
  - Thermal burn [Not Recovered/Not Resolved]
  - Blood pressure increased [Unknown]
  - Headache [Unknown]
  - Weight increased [Not Recovered/Not Resolved]
  - Productive cough [Not Recovered/Not Resolved]
  - Musculoskeletal discomfort [Not Recovered/Not Resolved]
  - Oropharyngeal pain [Recovered/Resolved]
  - Chest pain [Unknown]
  - Gastroenteritis viral [Not Recovered/Not Resolved]
  - Influenza [Not Recovered/Not Resolved]
  - Throat tightness [Recovered/Resolved]
  - Blood pressure fluctuation [Unknown]
  - Weight increased [Unknown]
  - Nasopharyngitis [Recovered/Resolved]
  - Heart rate increased [Unknown]
  - Bronchitis [Unknown]
  - Diarrhoea [Not Recovered/Not Resolved]
  - Chest discomfort [Not Recovered/Not Resolved]

NARRATIVE: CASE EVENT DATE: 2014
